FAERS Safety Report 15858597 (Version 1)
Quarter: 2018Q4

REPORT INFORMATION
  Report Type: Spontaneous
  Country: US (occurrence: US)
  Receive Date: 20181227
  Receipt Date: 20181227
  Transmission Date: 20190205
  Serious: Yes (Hospitalization)
  Sender: FDA-Public Use
  Company Number: None

PATIENT
  Age: 63 Year
  Sex: Male

DRUGS (16)
  1. CELAXA [Concomitant]
  2. FLOMAX [Concomitant]
     Active Substance: TAMSULOSIN HYDROCHLORIDE
  3. BETAMETH VAL [Concomitant]
  4. CLOBETASOL [Concomitant]
     Active Substance: CLOBETASOL
  5. ELIDEL [Concomitant]
     Active Substance: PIMECROLIMUS
  6. OXYCODONE [Concomitant]
     Active Substance: OXYCODONE
  7. HUMIRA [Suspect]
     Active Substance: ADALIMUMAB
     Indication: PSORIASIS
     Route: 058
     Dates: start: 20171018
  8. ALBUTEROL. [Concomitant]
     Active Substance: ALBUTEROL
  9. ASPIRIN. [Concomitant]
     Active Substance: ASPIRIN
  10. NORVASC [Concomitant]
     Active Substance: AMLODIPINE BESYLATE
  11. FLOVENT HFA [Concomitant]
     Active Substance: FLUTICASONE PROPIONATE
  12. MOMETASONE [Concomitant]
     Active Substance: MOMETASONE
  13. EX-LAX REGULAR STRENGTH STIMULANT LAXATIVE [Concomitant]
     Active Substance: SENNOSIDES
  14. LOSARTAN. [Concomitant]
     Active Substance: LOSARTAN
  15. PLAQUENIL [Concomitant]
     Active Substance: HYDROXYCHLOROQUINE SULFATE
  16. FIRST-MOUTHW SUS BLM [Concomitant]

REACTIONS (3)
  - Psoriasis [None]
  - Discomfort [None]
  - Aneurysm [None]
